FAERS Safety Report 7063282 (Version 2)
Quarter: 2012Q4

REPORT INFORMATION
  Report Type: Report from Study
  Country: US (occurrence: US)
  Receive Date: 20090724
  Receipt Date: 20121128
  Transmission Date: 20130627
  Serious: Yes (Hospitalization)
  Sender: FDA-Public Use
  Company Number: PHHO2009US09032

PATIENT
  Age: 68 Year
  Sex: Male

DRUGS (17)
  1. AFINITOR [Suspect]
     Indication: NEUROENDOCRINE CARCINOMA
     Dosage: 10 mg, QD
     Route: 048
     Dates: start: 20090210, end: 20090715
  2. AVASTIN [Suspect]
     Indication: NEUROENDOCRINE CARCINOMA
     Dosage: 15 mg/kg, QW3
     Route: 048
     Dates: start: 20090303, end: 20090707
  3. ATORVASTATIN [Concomitant]
  4. DEXTROSE [Concomitant]
  5. DORZOLAMIDE [Concomitant]
  6. HYDROMORPHONE [Concomitant]
  7. INSULIN ASPART [Concomitant]
  8. INSULIN HUMAN [Concomitant]
  9. LOSARTAN POTASSIUM [Concomitant]
  10. METHADONE [Concomitant]
  11. ONDANSETRON HYDROCHLORIDE [Concomitant]
  12. PERINDOPRIL [Concomitant]
  13. PROMETHAZINE [Concomitant]
  14. SODIUM CHLORIDE [Concomitant]
  15. TEMAZEPAM [Concomitant]
  16. TRAVOPROST [Concomitant]
  17. TIAMOL (TIMOLOL MALEATE) [Suspect]
     Dosage: 1 gtt, QD

REACTIONS (4)
  - Small intestinal obstruction [Unknown]
  - Abdominal pain [Unknown]
  - Nausea [Unknown]
  - Vomiting [Unknown]
